FAERS Safety Report 18312484 (Version 1)
Quarter: 2020Q3

REPORT INFORMATION
  Report Type: Spontaneous
  Country: DE (occurrence: DE)
  Receive Date: 20200925
  Receipt Date: 20200925
  Transmission Date: 20201103
  Serious: Yes (Other)
  Sender: FDA-Public Use
  Company Number: DE-BAYER-2020-197462

PATIENT
  Sex: Female

DRUGS (5)
  1. ESTRADIOL. [Suspect]
     Active Substance: ESTRADIOL
     Indication: CONTRACEPTION
  2. PARACETAMOL [Suspect]
     Active Substance: ACETAMINOPHEN
     Indication: PAIN
  3. BUDESONIDE. [Suspect]
     Active Substance: BUDESONIDE
     Indication: ASTHMA
  4. LEVONORGESTREL. [Suspect]
     Active Substance: LEVONORGESTREL
     Indication: CONTRACEPTION
  5. TICK?BORNE ENCEPHALITIS VACCINE [Suspect]
     Active Substance: TICK-BORNE ENCEPHALITIS VACCINE
     Indication: TICK-BORNE FEVER

REACTIONS (2)
  - Oligohydramnios [Not Recovered/Not Resolved]
  - Exposure during pregnancy [Not Recovered/Not Resolved]
